FAERS Safety Report 8918227 (Version 2)
Quarter: 2013Q2

REPORT INFORMATION
  Report Type: Spontaneous
  Country: US (occurrence: US)
  Receive Date: 20121120
  Receipt Date: 20130522
  Transmission Date: 20140414
  Serious: No
  Sender: FDA-Public Use
  Company Number: US-ASTRAZENECA-2012SE24770

PATIENT
  Age: 45 Year
  Sex: Female

DRUGS (3)
  1. NEXIUM [Suspect]
     Route: 048
  2. PRILOSEC [Suspect]
     Route: 048
  3. PREVACID [Concomitant]

REACTIONS (7)
  - Hiatus hernia [Unknown]
  - Ulcer haemorrhage [Unknown]
  - Ear infection [Unknown]
  - Breast cyst [Unknown]
  - Vomiting [Unknown]
  - Drug dose omission [Unknown]
  - Drug ineffective [Unknown]
